FAERS Safety Report 5623611-4 (Version None)
Quarter: 2008Q1

REPORT INFORMATION
  Report Type: 
  Country: None (occurrence: None)
  Receive Date: 20080212
  Receipt Date: 20080206
  Transmission Date: 20080703
  Serious: Yes (Hospitalization)
  Sender: FDA-Public Use
  Company Number: AU-BOEHRINGER INGELHEIM GMBH, GERMANY-2008-BP-01994AU

PATIENT
  Sex: Female
  Weight: 75 kg

DRUGS (5)
  1. MOBIC [Suspect]
     Indication: OSTEOARTHRITIS
     Route: 048
     Dates: start: 20071115, end: 20080118
  2. ATACAND [Concomitant]
     Indication: HYPERTENSION
     Route: 048
  3. ZANIDIP [Concomitant]
     Indication: HYPERTENSION
     Route: 048
  4. LIPITOR [Concomitant]
     Indication: HYPERCHOLESTEROLAEMIA
     Route: 048
  5. ACETAMINOPHEN W/ PROPOXYPHENE HCL [Concomitant]
     Indication: OSTEOARTHRITIS
     Route: 048

REACTIONS (4)
  - CHEST PAIN [None]
  - GASTRITIS [None]
  - HYPERTENSION [None]
  - NAUSEA [None]
